FAERS Safety Report 22163904 (Version 3)
Quarter: 2023Q2

REPORT INFORMATION
  Report Type: Spontaneous
  Country: GB (occurrence: GB)
  Receive Date: 20230401
  Receipt Date: 20230411
  Transmission Date: 20230722
  Serious: Yes (Death, Other)
  Sender: FDA-Public Use
  Company Number: GB-009507513-2303GBR010608

PATIENT
  Age: 37 Year
  Sex: Female

DRUGS (4)
  1. KEYTRUDA [Suspect]
     Active Substance: PEMBROLIZUMAB
     Indication: Ovarian germ cell tumour
     Dosage: UNK
  2. OLAPARIB [Concomitant]
     Active Substance: OLAPARIB
     Dosage: UNK
  3. OLAPARIB [Concomitant]
     Active Substance: OLAPARIB
     Indication: Ovarian germ cell tumour
  4. PALBOCICLIB [Concomitant]
     Active Substance: PALBOCICLIB
     Indication: Ovarian germ cell tumour
     Dosage: UNK

REACTIONS (2)
  - Sudden death [Fatal]
  - Malignant neoplasm progression [Fatal]
